FAERS Safety Report 6134741-5 (Version None)
Quarter: 2009Q1

REPORT INFORMATION
  Report Type: 
  Country: None (occurrence: None)
  Receive Date: 20090327
  Receipt Date: 20090316
  Transmission Date: 20090719
  Serious: Yes (Other)
  Sender: FDA-Public Use
  Company Number: US-ROCHE-609746

PATIENT
  Sex: Male

DRUGS (9)
  1. PEGASYS [Suspect]
     Indication: HEPATITIS C
     Route: 058
     Dates: start: 20080707, end: 20080822
  2. PEGASYS [Suspect]
     Route: 058
     Dates: start: 20081010, end: 20090122
  3. RIBAVIRIN [Suspect]
     Indication: HEPATITIS C
     Route: 048
     Dates: end: 20080812
  4. RIBAVIRIN [Suspect]
     Route: 048
     Dates: end: 20090122
  5. VICODIN [Concomitant]
     Dosage: AS NEEDED.
     Route: 048
  6. SEROQUEL [Concomitant]
     Dosage: DRUG NAME REPORTED AS SERAQUIL
     Route: 048
  7. REMERON [Concomitant]
     Route: 048
  8. FLOMAX [Concomitant]
     Route: 048
     Dates: start: 20090101
  9. NAPROXEN [Concomitant]
     Dosage: AS NEEDED.
     Route: 048

REACTIONS (1)
  - BLOOD CREATININE INCREASED [None]
